FAERS Safety Report 23113094 (Version 2)
Quarter: 2023Q4

REPORT INFORMATION
  Report Type: Spontaneous
  Country: US (occurrence: US)
  Receive Date: 20231027
  Receipt Date: 20231208
  Transmission Date: 20240109
  Serious: Yes (Other)
  Sender: FDA-Public Use
  Company Number: US-BRISTOL-MYERS SQUIBB COMPANY-2023-152367

PATIENT
  Age: 56 Year
  Sex: Female

DRUGS (2)
  1. ABRAXANE [Suspect]
     Active Substance: PACLITAXEL
     Indication: Neoplasm malignant
     Dates: start: 20231201
  2. KEYTRUDA [Concomitant]
     Active Substance: PEMBROLIZUMAB
     Indication: Product used for unknown indication

REACTIONS (17)
  - Wheezing [Unknown]
  - Cough [Unknown]
  - Headache [Unknown]
  - Dizziness [Unknown]
  - Confusional state [Unknown]
  - Diarrhoea [Unknown]
  - Pain [Unknown]
  - Vomiting [Unknown]
  - Hypoaesthesia [Unknown]
  - Rash [Unknown]
  - Urticaria [Unknown]
  - Blister [Unknown]
  - Pruritus [Unknown]
  - Contusion [Unknown]
  - Infection [Unknown]
  - Paraesthesia [Unknown]
  - Malignant neoplasm progression [Unknown]
